FAERS Safety Report 4838888-2 (Version None)
Quarter: 2005Q4

REPORT INFORMATION
  Report Type: 
  Country: None (occurrence: None)
  Receive Date: 20051129
  Receipt Date: 20050906
  Transmission Date: 20060501
  Serious: No
  Sender: FDA-Public Use
  Company Number: US-GLAXOSMITHKLINE-A0573127A

PATIENT
  Age: 48 Year
  Sex: Female
  Weight: 89.5 kg

DRUGS (9)
  1. LOTRONEX [Suspect]
     Indication: IRRITABLE BOWEL SYNDROME
     Dosage: 1MG PER DAY
     Route: 048
     Dates: start: 20050401
  2. PLAVIX [Concomitant]
     Dosage: 75MG PER DAY
     Route: 065
  3. TETRACYCLINE [Concomitant]
  4. IMITREX [Concomitant]
     Indication: HEADACHE
     Route: 065
  5. BENICAR [Concomitant]
  6. HERBAL SUPPLEMENT [Concomitant]
  7. NADOLOL [Concomitant]
     Dosage: 20MG TWICE PER DAY
     Route: 065
  8. CENESTIN [Concomitant]
     Dosage: .625MG PER DAY
     Route: 065
  9. ALEVE [Concomitant]

REACTIONS (2)
  - CONSTIPATION [None]
  - ECCHYMOSIS [None]
